FAERS Safety Report 5766674-8 (Version None)
Quarter: 2008Q2

REPORT INFORMATION
  Report Type: 
  Country: None (occurrence: None)
  Receive Date: 20080612
  Receipt Date: 20080604
  Transmission Date: 20081010
  Serious: Yes (Death)
  Sender: FDA-Public Use
  Company Number: US-NOVOPROD-275945

PATIENT
  Age: 49 Year
  Sex: Female
  Weight: 44.444 kg

DRUGS (12)
  1. NOVOLOG [Suspect]
     Indication: TYPE 1 DIABETES MELLITUS
     Dosage: 3 LU - 18 LU SLIDING SCALE
     Route: 058
  2. LORCET                             /00607101/ [Interacting]
     Indication: PAIN
     Dosage: 10 MG, PRN (4-6 HOURS)
     Route: 048
  3. LANTUS [Interacting]
     Indication: TYPE 1 DIABETES MELLITUS
     Dosage: 40 IU, QD
     Route: 058
  4. ZONEGRAN [Interacting]
     Dosage: 100 MG, BID
     Route: 048
  5. TRILEPTAL [Interacting]
     Indication: NEURALGIA
     Dosage: 200 MG, BID
     Route: 048
  6. CYMBALTA [Interacting]
     Indication: DEPRESSION
     Dosage: 90 MG, QD
     Route: 048
  7. XANAX [Interacting]
     Indication: ANXIETY
     Dosage: .5 MG, BID
     Route: 048
  8. PLAVIX [Concomitant]
     Indication: THROMBOSIS PROPHYLAXIS
     Dosage: 75 MG, QD
     Route: 048
  9. PREVACID [Concomitant]
     Indication: GASTROOESOPHAGEAL REFLUX DISEASE
     Dosage: 30 MG, BID
     Route: 048
  10. REGLAN [Concomitant]
     Indication: IMPAIRED GASTRIC EMPTYING
     Dosage: 10 MG, QID
  11. HYZAAR [Concomitant]
     Indication: HYPERTENSION
     Dosage: 100/12.5
     Route: 048
  12. LYRICA [Concomitant]
     Indication: FIBROMYALGIA
     Dosage: 50 MG, TID
     Route: 048

REACTIONS (7)
  - DIABETES MELLITUS INADEQUATE CONTROL [None]
  - DRUG INTERACTION [None]
  - INSOMNIA [None]
  - MALAISE [None]
  - PAIN IN EXTREMITY [None]
  - RESTLESSNESS [None]
  - VOMITING [None]
